FAERS Safety Report 20424590 (Version 1)
Quarter: 2022Q1

REPORT INFORMATION
  Report Type: Spontaneous
  Country: DE (occurrence: DE)
  Receive Date: 20220203
  Receipt Date: 20220203
  Transmission Date: 20220423
  Serious: Yes (Death, Hospitalization, Other)
  Sender: FDA-Public Use
  Company Number: DE-CADRBFARM-2022255928

PATIENT
  Age: 71 Year
  Sex: Female
  Weight: 100 kg

DRUGS (1)
  1. METFORMIN [Suspect]
     Active Substance: METFORMIN HYDROCHLORIDE
     Indication: Type 2 diabetes mellitus
     Dosage: 850 MILLIGRAM, TWO TIMES A DAY (850 MG 1-0-1)
     Route: 048
     Dates: end: 20220101

REACTIONS (3)
  - Acute kidney injury [Fatal]
  - Lactic acidosis [Fatal]
  - Urosepsis [Fatal]

NARRATIVE: CASE EVENT DATE: 20220101
